FAERS Safety Report 22179147 (Version 2)
Quarter: 2023Q2

REPORT INFORMATION
  Report Type: Spontaneous
  Country: FR (occurrence: FR)
  Receive Date: 20230406
  Receipt Date: 20230414
  Transmission Date: 20230722
  Serious: Yes (Hospitalization, Other)
  Sender: FDA-Public Use
  Company Number: FR-AFSSAPS-BX2023000465

PATIENT
  Age: 59 Year
  Sex: Male

DRUGS (12)
  1. CETIRIZINE [Suspect]
     Active Substance: CETIRIZINE HYDROCHLORIDE
     Indication: Poisoning deliberate
     Dosage: 150 MILLIGRAM(1 TOTAL)
     Route: 065
     Dates: start: 20230227, end: 20230227
  2. LOPERAMIDE [Suspect]
     Active Substance: LOPERAMIDE
     Indication: Poisoning deliberate
     Dosage: 40 MILLIGRAM(1 TOTAL)
     Route: 065
     Dates: start: 20230227, end: 20230227
  3. VALPROATE SODIUM [Suspect]
     Active Substance: VALPROATE SODIUM
     Indication: Epilepsy
     Dosage: 3 GRAM, ONCE A DAY
     Route: 065
  4. PHLOROGLUCINOL [Suspect]
     Active Substance: PHLOROGLUCINOL
     Indication: Poisoning deliberate
     Dosage: 800 MILLIGRAM(1 TOTAL)
     Route: 065
     Dates: start: 20230227, end: 20230227
  5. STROMECTOL [Suspect]
     Active Substance: IVERMECTIN
     Indication: Poisoning deliberate
     Dosage: 36 MILLIGRAM(1 TOTAL)
     Route: 065
     Dates: start: 20230227, end: 20230227
  6. VALIUM [Suspect]
     Active Substance: DIAZEPAM
     Indication: Poisoning deliberate
     Dosage: 400 MILLIGRAM(1 TOTAL)
     Route: 065
     Dates: start: 20230227, end: 20230227
  7. Loxen [Concomitant]
     Indication: Product used for unknown indication
     Dosage: UNK
     Route: 065
  8. FENOFIBRATE [Concomitant]
     Active Substance: FENOFIBRATE
     Indication: Product used for unknown indication
     Dosage: UNK
     Route: 065
  9. MIRTAZAPINE [Concomitant]
     Active Substance: MIRTAZAPINE
     Indication: Product used for unknown indication
     Dosage: UNK
     Route: 065
  10. PANTOPRAZOLE [Concomitant]
     Active Substance: PANTOPRAZOLE
     Indication: Product used for unknown indication
     Dosage: UNK
     Route: 065
  11. PAROXETINE HYDROCHLORIDE [Concomitant]
     Active Substance: PAROXETINE HYDROCHLORIDE
     Indication: Product used for unknown indication
     Dosage: UNK
     Route: 065
  12. TAHOR [Concomitant]
     Active Substance: ATORVASTATIN CALCIUM
     Indication: Product used for unknown indication
     Dosage: UNK
     Route: 065

REACTIONS (3)
  - Coma [Recovered/Resolved]
  - Poisoning deliberate [Recovered/Resolved]
  - Hyperammonaemia [Recovered/Resolved]

NARRATIVE: CASE EVENT DATE: 20230227
